FAERS Safety Report 14382155 (Version 2)
Quarter: 2018Q1

REPORT INFORMATION
  Report Type: Report from Study
  Country: US (occurrence: US)
  Receive Date: 20180112
  Receipt Date: 20180206
  Transmission Date: 20180509
  Serious: Yes (Hospitalization)
  Sender: FDA-Public Use
  Company Number: US-ACTELION-A-US2018-165718

PATIENT
  Age: 69 Year
  Sex: Male
  Weight: 115.65 kg

DRUGS (2)
  1. OPSUMIT [Suspect]
     Active Substance: MACITENTAN
     Indication: PULMONARY ARTERIAL HYPERTENSION
     Dosage: 10 MG, QD
     Route: 048
  2. SILDENAFIL CITRATE. [Concomitant]
     Active Substance: SILDENAFIL CITRATE

REACTIONS (5)
  - Sinusitis [Unknown]
  - Dizziness [Unknown]
  - Nasal congestion [Unknown]
  - Vertigo [Unknown]
  - Labyrinthitis [Unknown]

NARRATIVE: CASE EVENT DATE: 20180102
